FAERS Safety Report 9067412 (Version 2)
Quarter: 2013Q1

REPORT INFORMATION
  Report Type: Spontaneous
  Country: US (occurrence: US)
  Receive Date: 20130214
  Receipt Date: 20130221
  Transmission Date: 20140127
  Serious: Yes (Hospitalization, Other)
  Sender: FDA-Public Use
  Company Number: US-ELI_LILLY_AND_COMPANY-US201302002154

PATIENT
  Age: 76 None
  Sex: Female

DRUGS (2)
  1. FORTEO [Suspect]
     Indication: OSTEOPOROSIS
     Dosage: 20 UG, QD
     Dates: start: 201212, end: 201301
  2. FORTEO [Suspect]
     Dosage: 20 UG, QD
     Dates: start: 20130205

REACTIONS (3)
  - Femur fracture [Unknown]
  - Fall [Unknown]
  - Malaise [Unknown]
